FAERS Safety Report 15250689 (Version 4)
Quarter: 2018Q3

REPORT INFORMATION
  Report Type: Spontaneous
  Country: CA (occurrence: CA)
  Receive Date: 20180807
  Receipt Date: 20180927
  Transmission Date: 20181010
  Serious: Yes (Other)
  Sender: FDA-Public Use
  Company Number: CA-PFIZER INC-2015396110

PATIENT
  Age: 47 Year
  Sex: Female

DRUGS (27)
  1. ENBREL [Suspect]
     Active Substance: ETANERCEPT
     Indication: RHEUMATOID ARTHRITIS
     Dosage: 50 MG, WEEKLY
     Dates: start: 20061127, end: 20090226
  2. LEFLUNOMIDE. [Suspect]
     Active Substance: LEFLUNOMIDE
     Indication: RHEUMATOID ARTHRITIS
     Dosage: 20 MG, DAILY
     Dates: start: 2006, end: 2006
  3. ARTHROTEC [Concomitant]
     Active Substance: DICLOFENAC SODIUM\MISOPROSTOL
     Dosage: UNK
  4. SULFASALAZINE. [Suspect]
     Active Substance: SULFASALAZINE
     Indication: RHEUMATOID ARTHRITIS
     Dosage: 2 MG, QD
     Dates: start: 2005, end: 200803
  5. ASPIRIN. [Concomitant]
     Active Substance: ASPIRIN
     Dosage: UNK
  6. GLICLAZIDE [Concomitant]
     Active Substance: GLICLAZIDE
     Route: 065
  7. REACTINE [Concomitant]
     Dosage: UNK
  8. CLARITIN [Concomitant]
     Active Substance: LORATADINE
     Dosage: UNK
     Route: 065
  9. TOPIRAMATE. [Concomitant]
     Active Substance: TOPIRAMATE
     Dosage: UNK
     Route: 065
  10. ORENCIA [Suspect]
     Active Substance: ABATACEPT
     Dosage: 750 MG, Q4WK
     Route: 042
     Dates: start: 20090624, end: 20151027
  11. APO?SULFASALAZINE [Suspect]
     Active Substance: SULFASALAZINE
     Dosage: 2 MG, QD
     Route: 065
  12. BUDESONIDE W/FORMOTEROL FUMARATE [Concomitant]
     Active Substance: BUDESONIDE\FORMOTEROL FUMARATE
     Dosage: UNK
     Route: 065
  13. FOLIC ACID. [Concomitant]
     Active Substance: FOLIC ACID
     Route: 065
  14. CODEINE [Suspect]
     Active Substance: CODEINE
     Dosage: UNK
  15. ORENCIA [Suspect]
     Active Substance: ABATACEPT
     Indication: RHEUMATOID ARTHRITIS
     Dosage: 750 MG, MONTHLY
     Route: 042
     Dates: start: 20090624, end: 20151027
  16. APO?LEFLUNOMIDE [Suspect]
     Active Substance: LEFLUNOMIDE
     Indication: RHEUMATOID ARTHRITIS
     Dosage: 20 MG, QD
     Route: 065
  17. CIPROFLOXACIN. [Concomitant]
     Active Substance: CIPROFLOXACIN
     Route: 065
  18. METHOTREXATE SODIUM. [Suspect]
     Active Substance: METHOTREXATE SODIUM
     Indication: RHEUMATOID ARTHRITIS
     Dosage: UP TO 30 MG WEEKLY
     Dates: start: 2005
  19. ABATACEPT [Suspect]
     Active Substance: ABATACEPT
     Indication: RHEUMATOID ARTHRITIS
     Dosage: 750 MG, QWK
     Route: 042
  20. ABATACEPT [Suspect]
     Active Substance: ABATACEPT
     Dosage: 750MG EVERY 4 WEEK
  21. FERROUS GLUCONATE [Concomitant]
     Active Substance: FERROUS GLUCONATE
     Dosage: UNK
     Route: 065
  22. APO?SULFASALAZINE [Suspect]
     Active Substance: SULFASALAZINE
     Indication: RHEUMATOID ARTHRITIS
     Dosage: 2 G, DAILY
     Dates: start: 2005, end: 200803
  23. LOSEC [Concomitant]
     Active Substance: OMEPRAZOLE
     Dosage: UNK
     Route: 065
  24. PREVACID [Concomitant]
     Active Substance: LANSOPRAZOLE
     Route: 065
  25. SINEMET [Concomitant]
     Active Substance: CARBIDOPA\LEVODOPA
     Dosage: UNK
     Route: 065
  26. CARBIDOPA LEVODOPA [Concomitant]
     Active Substance: CARBIDOPA\LEVODOPA
     Route: 065
  27. FERROUS FUMARATE [Concomitant]
     Active Substance: FERROUS FUMARATE
     Dosage: UNK
     Route: 065

REACTIONS (11)
  - Skin depigmentation [Unknown]
  - Hepatic enzyme increased [Unknown]
  - Red blood cell sedimentation rate abnormal [Unknown]
  - Visual impairment [Unknown]
  - Rheumatoid arthritis [Unknown]
  - Psoriasis [Unknown]
  - Dermatitis psoriasiform [Unknown]
  - Pain in extremity [Unknown]
  - C-reactive protein abnormal [Unknown]
  - Nausea [Unknown]
  - Drug ineffective [Unknown]
